FAERS Safety Report 5927001-6 (Version None)
Quarter: 2008Q4

REPORT INFORMATION
  Report Type: 
  Country: None (occurrence: None)
  Receive Date: 20081021
  Receipt Date: 20081021
  Transmission Date: 20090506
  Serious: Yes (Disabling, Other)
  Sender: FDA-Public Use
  Company Number: None

PATIENT
  Age: 3 Year
  Sex: Female
  Weight: 13.6079 kg

DRUGS (1)
  1. ELIDEL [Suspect]
     Indication: ECZEMA
     Dosage: THIN LAYER TO AFFECTED AREA 2 TIMES PER DAY TOP, AS NEEDED
     Route: 061

REACTIONS (2)
  - APPLICATION SITE REACTION [None]
  - SKIN PAPILLOMA [None]
